FAERS Safety Report 9232716 (Version 1)
Quarter: 2013Q2

REPORT INFORMATION
  Report Type: Spontaneous
  Country: ES (occurrence: None)
  Receive Date: 20130412
  Receipt Date: 20130412
  Transmission Date: 20140414
  Serious: Yes (Other)
  Sender: FDA-Public Use
  Company Number: 1661697

PATIENT
  Age: 83 Year
  Sex: Female

DRUGS (3)
  1. IMIPENEM AND CILASTATIN [Suspect]
     Indication: PANCREATITIS ACUTE
  2. IOVERSOL [Suspect]
     Indication: COMPUTERISED TOMOGRAM
  3. AMIKACIN [Concomitant]

REACTIONS (1)
  - Drug reaction with eosinophilia and systemic symptoms [None]
